FAERS Safety Report 5377667-7 (Version None)
Quarter: 2007Q3

REPORT INFORMATION
  Report Type: 
  Country: None (occurrence: None)
  Receive Date: 20070703
  Receipt Date: 20070622
  Transmission Date: 20080115
  Serious: Yes (Other)
  Sender: FDA-Public Use
  Company Number: US-PFIZER INC-2007032337

PATIENT
  Age: 48 Year
  Sex: Female
  Weight: 56.7 kg

DRUGS (4)
  1. LYRICA [Suspect]
     Indication: NEURALGIA
     Route: 048
     Dates: start: 20070209, end: 20070312
  2. LYRICA [Suspect]
     Indication: SPINAL FUSION SURGERY
  3. NEURONTIN [Suspect]
     Indication: NEURALGIA
     Dates: start: 20070205, end: 20070201
  4. NEURONTIN [Suspect]
     Indication: SPINAL FUSION SURGERY

REACTIONS (2)
  - BREAST CYST [None]
  - BREAST PAIN [None]
